FAERS Safety Report 4590721-2 (Version None)
Quarter: 2005Q1

REPORT INFORMATION
  Report Type: 
  Country: None (occurrence: None)
  Receive Date: 20050224
  Receipt Date: 20040312
  Transmission Date: 20050727
  Serious: Yes (Hospitalization, Disabling, Other)
  Sender: FDA-Public Use
  Company Number: US-MERCK-0403USA01342

PATIENT
  Age: 53 Year
  Sex: Male
  Weight: 80 kg

DRUGS (12)
  1. VIOXX [Suspect]
     Indication: ARTHRITIS
     Route: 048
     Dates: start: 20000301
  2. VIOXX [Suspect]
     Route: 048
     Dates: end: 20030404
  3. VIOXX [Suspect]
     Route: 048
     Dates: start: 20021101
  4. VIOXX [Suspect]
     Route: 048
     Dates: start: 20010320, end: 20010321
  5. VIOXX [Suspect]
     Route: 048
     Dates: start: 20010321
  6. GUAIFENESIN [Concomitant]
     Route: 065
  7. CEFTIN [Concomitant]
     Route: 065
  8. ASPIRIN [Concomitant]
     Route: 048
  9. PROBETA (DIPIVEFRIN HYDROCHLORIDE (+) LEVOBUNOLOL HYDROCHLORIDE) [Concomitant]
     Route: 047
  10. DIAMOX [Concomitant]
     Route: 048
  11. GLUCOSAMINE [Concomitant]
     Route: 048
  12. ADVIL [Concomitant]
     Route: 048
     Dates: start: 20010705

REACTIONS (13)
  - ARTHROPATHY [None]
  - ATHEROSCLEROSIS [None]
  - CEREBROVASCULAR ACCIDENT [None]
  - COUGH [None]
  - DILATATION ATRIAL [None]
  - EAR INFECTION [None]
  - EMOTIONAL DISTRESS [None]
  - GASTROOESOPHAGEAL REFLUX DISEASE [None]
  - MENINGIOMA [None]
  - MYOCARDIAL INFARCTION [None]
  - PARAESTHESIA [None]
  - RETINAL ARTERY OCCLUSION [None]
  - TOOTH DISORDER [None]
